FAERS Safety Report 16197529 (Version 5)
Quarter: 2020Q2

REPORT INFORMATION
  Report Type: Spontaneous
  Country: JP (occurrence: JP)
  Receive Date: 20190415
  Receipt Date: 20200629
  Transmission Date: 20200713
  Serious: Yes (Death, Hospitalization, Other)
  Sender: FDA-Public Use
  Company Number: JP-ROCHE-2297313

PATIENT
  Age: 51 Year
  Sex: Female
  Weight: 56 kg

DRUGS (3)
  1. PYDOXAL [Concomitant]
     Active Substance: PYRIDOXAL
     Dosage: DOSAGE IN UNCERTAIN.
     Route: 065
     Dates: start: 20181127, end: 20190318
  2. RANMARK [Concomitant]
     Active Substance: DENOSUMAB
     Dosage: DOSAGE IS UNCERTAIN.
     Route: 065
     Dates: start: 20181127, end: 20190218
  3. XELODA [Suspect]
     Active Substance: CAPECITABINE
     Indication: BREAST CANCER
     Dosage: AFTER THE MEAL IN THE MORNING AND EVENING ONE TAKING WEEKLY HOLIDAY MEDICINE ON THE 21ST
     Route: 048
     Dates: start: 20181127, end: 20190312

REACTIONS (6)
  - Pleural effusion [Unknown]
  - Hepatic encephalopathy [Unknown]
  - Pancreatitis acute [Unknown]
  - Breast cancer [Fatal]
  - Disseminated intravascular coagulation [Unknown]
  - Hepatic failure [Fatal]

NARRATIVE: CASE EVENT DATE: 2019
